FAERS Safety Report 9520462 (Version 5)
Quarter: 2014Q1

REPORT INFORMATION
  Report Type: Report from Study
  Country: US (occurrence: US)
  Receive Date: 20130912
  Receipt Date: 20140313
  Transmission Date: 20141002
  Serious: Yes (Other)
  Sender: FDA-Public Use
  Company Number: US-MYLANLABS-2013S1020383

PATIENT
  Age: 29 Year
  Sex: Female

DRUGS (6)
  1. AMNESTEEM CAPSULES [Suspect]
     Indication: ACNE
     Dosage: ONE CAPSULE ONCE A DAY WITH FOOD
     Dates: start: 20130820, end: 20130903
  2. DESOXIMETASONE [Concomitant]
     Dosage: 0.25% CREAM
  3. VALTREX [Concomitant]
     Dosage: AT ONSET OF SYMPTOMS FOR 7 DAYS
     Route: 048
  4. RISPERDAL [Concomitant]
     Dosage: TABLETS
  5. PAROXETINE [Concomitant]
     Dosage: TABLETS
  6. DRYSOL [Concomitant]
     Dosage: 20% SOLUTION - APPLY TO AXILLA NIGHTLY

REACTIONS (2)
  - Abortion spontaneous [Recovered/Resolved]
  - Exposure during pregnancy [Recovered/Resolved]
